FAERS Safety Report 9241993 (Version 1)
Quarter: 2013Q2

REPORT INFORMATION
  Report Type: Spontaneous
  Country: AT (occurrence: AT)
  Receive Date: 20130419
  Receipt Date: 20130419
  Transmission Date: 20140414
  Serious: Yes (Other)
  Sender: FDA-Public Use
  Company Number: AT-ROCHE-1215460

PATIENT
  Sex: 0

DRUGS (3)
  1. VEMURAFENIB [Suspect]
     Indication: METASTASES TO CENTRAL NERVOUS SYSTEM
     Route: 065
  2. VEMURAFENIB [Suspect]
     Indication: METASTASES TO LIVER
  3. VEMURAFENIB [Suspect]
     Indication: METASTASES TO LUNG

REACTIONS (1)
  - Drug reaction with eosinophilia and systemic symptoms [Unknown]
